FAERS Safety Report 9898960 (Version 1)
Quarter: 2014Q1

REPORT INFORMATION
  Report Type: Spontaneous
  Country: CO (occurrence: CO)
  Receive Date: 20140214
  Receipt Date: 20140214
  Transmission Date: 20141002
  Serious: Yes (Life-Threatening, Other)
  Sender: FDA-Public Use
  Company Number: CO-VIIV HEALTHCARE LIMITED-A1060891A

PATIENT
  Sex: Male
  Weight: 83 kg

DRUGS (3)
  1. KIVEXA [Suspect]
     Indication: HIV INFECTION
     Dosage: 600MG PER DAY
     Route: 048
     Dates: start: 20140124, end: 20140201
  2. FOSAMPRENAVIR [Concomitant]
  3. RITONAVIR [Concomitant]

REACTIONS (8)
  - Respiratory distress [Recovered/Resolved]
  - Loss of consciousness [Unknown]
  - Rash generalised [Recovered/Resolved]
  - Pyrexia [Recovered/Resolved]
  - Rash papular [Unknown]
  - Pruritus [Unknown]
  - Diarrhoea [Recovered/Resolved]
  - Syncope [Unknown]
